FAERS Safety Report 22524578 (Version 1)
Quarter: 2023Q2

REPORT INFORMATION
  Report Type: Spontaneous
  Country: KR (occurrence: KR)
  Receive Date: 20230606
  Receipt Date: 20230606
  Transmission Date: 20230721
  Serious: Yes (Death)
  Sender: FDA-Public Use
  Company Number: KR-ORGANON-O2305KOR003136

PATIENT
  Age: 56 Year
  Sex: Male
  Weight: 83.7 kg

DRUGS (7)
  1. COZAAR [Suspect]
     Active Substance: LOSARTAN POTASSIUM
     Indication: Arteriosclerosis coronary artery
     Dosage: 1 FORMULATION, ONE PER DAY
     Route: 048
     Dates: start: 20180625, end: 20190325
  2. CLOPIDOGREL BISULFATE [Suspect]
     Active Substance: CLOPIDOGREL BISULFATE
     Dosage: 600 MILLIGRAM, ONE PER DAY
     Route: 048
     Dates: start: 20180623
  3. ASPIRIN [Suspect]
     Active Substance: ASPIRIN
     Dosage: 300 MILLIGRAM, ONE PER DAY
     Route: 048
     Dates: start: 20180623
  4. ASPIRIN [Suspect]
     Active Substance: ASPIRIN
     Dosage: 100 MILLIGRAM, ONE PER DAY
     Route: 048
     Dates: start: 20180624, end: 20190325
  5. ROSUVASTATIN CALCIUM [Concomitant]
     Active Substance: ROSUVASTATIN CALCIUM
     Indication: Arteriosclerosis coronary artery
     Dosage: 1 FORMULATION, ONE PER DAY
     Route: 048
     Dates: start: 20180623, end: 20190325
  6. CARVEDILOL [Concomitant]
     Active Substance: CARVEDILOL
     Indication: Arteriosclerosis coronary artery
     Dosage: 1 FORMULATION, 0.5 DAY
     Route: 048
     Dates: start: 20180624, end: 20180625
  7. CARVEDILOL [Concomitant]
     Active Substance: CARVEDILOL
     Dosage: 1 FORMULATION,  0.5 DAY
     Route: 048
     Dates: start: 20180626, end: 20190325

REACTIONS (1)
  - Non-small cell lung cancer metastatic [Fatal]

NARRATIVE: CASE EVENT DATE: 20190107
